FAERS Safety Report 12596244 (Version 1)
Quarter: 2016Q3

REPORT INFORMATION
  Report Type: Report from Study
  Country: US (occurrence: US)
  Receive Date: 20160726
  Receipt Date: 20160726
  Transmission Date: 20161109
  Serious: Yes (Other)
  Sender: FDA-Public Use
  Company Number: US-AMGEN-USASL2016061912

PATIENT
  Age: 58 Year
  Sex: Female

DRUGS (4)
  1. ZOMETA [Concomitant]
     Active Substance: ZOLEDRONIC ACID
     Dosage: UNK
  2. KYPROLIS [Suspect]
     Active Substance: CARFILZOMIB
     Indication: PRODUCT USED FOR UNKNOWN INDICATION
     Dosage: UNK
     Route: 065
     Dates: start: 20160128
  3. REVLIMID [Concomitant]
     Active Substance: LENALIDOMIDE
     Dosage: UNK
     Dates: start: 20160128
  4. DEXAMETHASONE. [Concomitant]
     Active Substance: DEXAMETHASONE
     Dosage: UNK
     Dates: start: 20160128

REACTIONS (9)
  - Musculoskeletal chest pain [Recovering/Resolving]
  - Off label use [Unknown]
  - Neutropenia [Unknown]
  - Dyspepsia [Unknown]
  - Gastrointestinal disorder [Unknown]
  - Fall [Unknown]
  - Diarrhoea [Unknown]
  - Upper limb fracture [Unknown]
  - Radius fracture [Unknown]

NARRATIVE: CASE EVENT DATE: 2016
